FAERS Safety Report 4314832-1 (Version None)
Quarter: 2004Q1

REPORT INFORMATION
  Report Type: 
  Country: None (occurrence: None)
  Receive Date: 20040310
  Receipt Date: 20040223
  Transmission Date: 20041129
  Serious: Yes (Other)
  Sender: FDA-Public Use
  Company Number: FR-BRISTOL-MYERS SQUIBB COMPANY-12518809

PATIENT
  Age: 70 Year
  Sex: Female

DRUGS (4)
  1. GLUCOPHAGE [Suspect]
     Indication: DIABETES MELLITUS NON-INSULIN-DEPENDENT
     Route: 048
     Dates: end: 20040101
  2. MEDIATOR [Concomitant]
  3. DAONIL [Concomitant]
     Indication: DIABETES MELLITUS
  4. VASTAREL [Concomitant]

REACTIONS (1)
  - APLASTIC ANAEMIA [None]
